FAERS Safety Report 6163863-8 (Version None)
Quarter: 2009Q2

REPORT INFORMATION
  Report Type: 
  Country: None (occurrence: None)
  Receive Date: 20090420
  Receipt Date: 20090408
  Transmission Date: 20091009
  Serious: Yes (Disabling, Other)
  Sender: FDA-Public Use
  Company Number: GXKR2009GB04483

PATIENT
  Age: 72 Year
  Sex: Male
  Weight: 73.2 kg

DRUGS (6)
  1. SIMVASTATIN [Suspect]
     Indication: HYPERCHOLESTEROLAEMIA
     Dosage: 20 MG, ORAL
     Route: 048
     Dates: start: 20070401, end: 20090212
  2. ASACOL [Concomitant]
  3. DAPSONE [Concomitant]
  4. OMEPRAZOLE MAGNESIUM (OMEPRAZOLE MAGNESIUM) [Concomitant]
  5. NIFEDIPINE [Concomitant]
  6. PROPRANOLOL [Concomitant]

REACTIONS (4)
  - ASTHENIA [None]
  - MYALGIA [None]
  - NIGHT SWEATS [None]
  - WEIGHT DECREASED [None]
